FAERS Safety Report 10406706 (Version 2)
Quarter: 2014Q3

REPORT INFORMATION
  Report Type: Spontaneous
  Country: US (occurrence: US)
  Receive Date: 20140825
  Receipt Date: 20140909
  Transmission Date: 20150326
  Serious: No
  Sender: FDA-Public Use
  Company Number: CHPA2014US010917

PATIENT
  Age: 69 Year
  Sex: Female

DRUGS (4)
  1. VOLTAREN [Suspect]
     Active Substance: DICLOFENAC SODIUM
     Indication: TENDONITIS
  2. VOLTAREN [Suspect]
     Active Substance: DICLOFENAC SODIUM
     Indication: ARTHRITIS
     Dosage: 2 G, BID PRN
     Route: 061
     Dates: start: 201310
  3. VOLTAREN [Suspect]
     Active Substance: DICLOFENAC SODIUM
     Indication: OFF LABEL USE
  4. CLOBETASOL PROPIONATE. [Concomitant]
     Active Substance: CLOBETASOL PROPIONATE
     Indication: SKIN DISORDER
     Dosage: UNK
     Route: 065
     Dates: start: 20140819

REACTIONS (4)
  - Arthralgia [Not Recovered/Not Resolved]
  - Underdose [Unknown]
  - Drug administered at inappropriate site [Unknown]
  - Therapeutic response changed [Unknown]

NARRATIVE: CASE EVENT DATE: 201408
